FAERS Safety Report 12457509 (Version 1)
Quarter: 2016Q2

REPORT INFORMATION
  Report Type: Report from Study
  Country: AU (occurrence: AU)
  Receive Date: 20160610
  Receipt Date: 20160610
  Transmission Date: 20160815
  Serious: Yes (Other)
  Sender: FDA-Public Use
  Company Number: AU-ABBVIE-16K-008-1558583-00

PATIENT
  Age: 38 Year
  Sex: Female

DRUGS (2)
  1. PENTASA [Suspect]
     Active Substance: MESALAMINE
     Indication: PRODUCT USED FOR UNKNOWN INDICATION
     Route: 065
  2. HUMIRA [Suspect]
     Active Substance: ADALIMUMAB
     Indication: CROHN^S DISEASE
     Route: 058
     Dates: start: 20151028

REACTIONS (12)
  - Diarrhoea [Recovering/Resolving]
  - Therapeutic response unexpected [Unknown]
  - Anxiety [Unknown]
  - Fatigue [Recovering/Resolving]
  - Pre-existing condition improved [Unknown]
  - Crohn^s disease [Recovering/Resolving]
  - Feeling hot [Unknown]
  - Abdominal discomfort [Recovering/Resolving]
  - Drug effect incomplete [Recovering/Resolving]
  - Fistula [Recovering/Resolving]
  - Ovarian mass [Unknown]
  - Back pain [Recovering/Resolving]

NARRATIVE: CASE EVENT DATE: 2015
